FAERS Safety Report 23451538 (Version 1)
Quarter: 2024Q1

REPORT INFORMATION
  Report Type: Spontaneous
  Country: US (occurrence: US)
  Receive Date: 20240129
  Receipt Date: 20240129
  Transmission Date: 20240410
  Serious: Yes (Other)
  Sender: FDA-Public Use
  Company Number: US-SA-SAC20240125001193

PATIENT
  Age: 43 Year
  Sex: Female

DRUGS (1)
  1. DUPIXENT [Suspect]
     Active Substance: DUPILUMAB
     Indication: Eosinophilic oesophagitis
     Dosage: 300 MG, QW
     Route: 058
     Dates: start: 202311

REACTIONS (7)
  - Sjogren^s syndrome [Unknown]
  - Condition aggravated [Unknown]
  - Choking [Unknown]
  - Condition aggravated [Unknown]
  - Dysphagia [Unknown]
  - Condition aggravated [Unknown]
  - Retching [Unknown]
